FAERS Safety Report 21711019 (Version 2)
Quarter: 2023Q1

REPORT INFORMATION
  Report Type: Spontaneous
  Country: TH (occurrence: TH)
  Receive Date: 20221212
  Receipt Date: 20230106
  Transmission Date: 20230418
  Serious: Yes (Other)
  Sender: FDA-Public Use
  Company Number: TH-NOVOPROD-984040

PATIENT
  Age: 39 Year
  Sex: Female
  Weight: 98 kg

DRUGS (1)
  1. SAXENDA [Suspect]
     Active Substance: LIRAGLUTIDE
     Indication: Weight control
     Dosage: 3
     Dates: start: 20220701, end: 20221120

REACTIONS (2)
  - Carbohydrate antigen 19-9 increased [Recovered/Resolved]
  - Pancreatitis [Recovered/Resolved]
